FAERS Safety Report 7205851-6 (Version None)
Quarter: 2010Q4

REPORT INFORMATION
  Report Type: 
  Country: None (occurrence: None)
  Receive Date: 20101231
  Receipt Date: 20101223
  Transmission Date: 20110411
  Serious: Yes (Hospitalization)
  Sender: FDA-Public Use
  Company Number: US-PFIZER INC-2010182426

PATIENT
  Sex: Male

DRUGS (5)
  1. LIPITOR [Suspect]
  2. ATENOLOL [Suspect]
  3. MAXAIR [Suspect]
     Indication: ASTHMA
     Dosage: 0.2 MG, 2X/DAY
     Route: 055
  4. PLAVIX [Suspect]
  5. TETRYZOLINE HYDROCHLORIDE [Suspect]
     Route: 047

REACTIONS (1)
  - PNEUMONIA [None]
